FAERS Safety Report 25477547 (Version 2)
Quarter: 2025Q3

REPORT INFORMATION
  Report Type: Report from Study
  Country: US (occurrence: US)
  Receive Date: 20250625
  Receipt Date: 20250902
  Transmission Date: 20251021
  Serious: Yes (Other)
  Sender: ABBVIE
  Company Number: US-ABBVIE-6339936

PATIENT
  Age: 49 Year
  Sex: Female
  Weight: 69 kg

DRUGS (2)
  1. SKYRIZI [Suspect]
     Active Substance: RISANKIZUMAB-RZAA
     Indication: Crohn^s disease
     Dosage: DOSAGE: 150 MG/ML 150 MG/ML WEARABLE  INJECTOR
     Route: 058
     Dates: start: 20241106
  2. SKYRIZI [Suspect]
     Active Substance: RISANKIZUMAB-RZAA
     Indication: Product used for unknown indication
     Route: 042
     Dates: start: 20240807, end: 20241008

REACTIONS (4)
  - Invasive ductal breast carcinoma [Unknown]
  - Oestrogen receptor assay positive [Unknown]
  - Progesterone receptor assay positive [Unknown]
  - Human epidermal growth factor receptor negative [Unknown]

NARRATIVE: CASE EVENT DATE: 20250407
